FAERS Safety Report 24829124 (Version 2)
Quarter: 2025Q1

REPORT INFORMATION
  Report Type: Report from Study
  Country: IN (occurrence: IN)
  Receive Date: 20250110
  Receipt Date: 20250127
  Transmission Date: 20250409
  Serious: Yes (Hospitalization, Other)
  Sender: TAKEDA
  Company Number: IN-TAKEDA-2025TUS002315

PATIENT
  Sex: Male

DRUGS (1)
  1. VEDOLIZUMAB [Suspect]
     Active Substance: VEDOLIZUMAB
     Indication: Colitis ulcerative

REACTIONS (12)
  - Anal fistula [Unknown]
  - Large intestinal ulcer [Unknown]
  - Colitis ulcerative [Unknown]
  - Mucous stools [Unknown]
  - Diarrhoea [Unknown]
  - Rectal discharge [Unknown]
  - Gastrointestinal scarring [Unknown]
  - Frequent bowel movements [Unknown]
  - Haematochezia [Unknown]
  - Stress [Unknown]
  - Faeces hard [Unknown]
  - Flatulence [Unknown]
